FAERS Safety Report 8650553 (Version 3)
Quarter: 2012Q4

REPORT INFORMATION
  Report Type: 
  Country: US (occurrence: US)
  Receive Date: 20120705
  Receipt Date: 20120904
  Transmission Date: 20130627
  Serious: Yes (Other)
  Sender: FDA-Public Use
  Company Number: US-JNJFOC-20120700020

PATIENT
  Age: 50 Year
  Sex: Female
  Weight: 81.65 kg

DRUGS (8)
  1. ZYRTEC [Suspect]
     Route: 048
  2. ZYRTEC [Suspect]
     Indication: PRURITUS
     Route: 048
     Dates: start: 20120610, end: 20120626
  3. LISINOPRIL [Concomitant]
     Indication: HYPERTENSION
     Dosage: since 15 years
     Route: 065
  4. LASIX [Concomitant]
     Indication: HYPERTENSION
     Dosage: for 15 years
     Route: 065
  5. WELLBUTRIN SR [Concomitant]
     Indication: SEASONAL AFFECTIVE DISORDER
     Dosage: since 5 years
     Route: 065
  6. METFORMIN [Concomitant]
     Indication: TYPE 2 DIABETES MELLITUS
     Dosage: sine 6 years
     Route: 065
  7. LODINE [Concomitant]
     Indication: RHEUMATOID ARTHRITIS
     Dosage: since 10 years
     Route: 065
  8. LANTUS [Concomitant]
     Indication: DIABETES MELLITUS
     Dosage: 6 units daily
     Route: 065

REACTIONS (8)
  - Suicidal ideation [Recovered/Resolved]
  - Hallucination, auditory [Unknown]
  - Depression [Unknown]
  - Thinking abnormal [Recovered/Resolved]
  - Hypersomnia [Not Recovered/Not Resolved]
  - Fatigue [Not Recovered/Not Resolved]
  - Off label use [Unknown]
  - Therapeutic response unexpected [Unknown]
